FAERS Safety Report 14700453 (Version 2)
Quarter: 2018Q2

REPORT INFORMATION
  Report Type: Spontaneous
  Country: BR (occurrence: BR)
  Receive Date: 20180330
  Receipt Date: 20180424
  Transmission Date: 20180711
  Serious: Yes (Hospitalization, Other)
  Sender: FDA-Public Use
  Company Number: BR-PFIZER INC-2018125595

PATIENT
  Age: 83 Year
  Sex: Female

DRUGS (2)
  1. DIOVAN [Concomitant]
     Active Substance: VALSARTAN
     Indication: BLOOD PRESSURE ABNORMAL
     Dosage: UNK
  2. LIPITOR [Suspect]
     Active Substance: ATORVASTATIN CALCIUM
     Indication: BLOOD CHOLESTEROL ABNORMAL
     Dosage: 40 MG (2 TABLETS), DAILY

REACTIONS (5)
  - Infarction [Recovered/Resolved]
  - Dyspnoea [Not Recovered/Not Resolved]
  - Venous occlusion [Recovered/Resolved]
  - Arterial occlusive disease [Recovered/Resolved]
  - Fatigue [Not Recovered/Not Resolved]

NARRATIVE: CASE EVENT DATE: 2006
